FAERS Safety Report 6426441-9 (Version None)
Quarter: 2009Q4

REPORT INFORMATION
  Report Type: 
  Country: None (occurrence: None)
  Receive Date: 20091104
  Receipt Date: 20091027
  Transmission Date: 20100525
  Serious: Yes (Hospitalization)
  Sender: FDA-Public Use
  Company Number: PHHO2007DE19309

PATIENT
  Sex: Male
  Weight: 76 kg

DRUGS (4)
  1. RAD 666 RAD+TAB [Suspect]
     Indication: RENAL TRANSPLANT
     Dosage: 6 MG/DAY
     Route: 048
     Dates: start: 20070904
  2. RAD 666 RAD+TAB [Suspect]
     Dosage: 4.5 MG/DAY
     Route: 048
  3. MYFORTIC [Suspect]
     Indication: RENAL TRANSPLANT
     Dosage: 1440 MG/DAY
     Route: 048
     Dates: start: 20070706
  4. MYFORTIC [Suspect]
     Dosage: 720 MG/DAY
     Route: 048

REACTIONS (1)
  - PNEUMONIA [None]
